FAERS Safety Report 5191342-3 (Version None)
Quarter: 2006Q4

REPORT INFORMATION
  Report Type: 
  Country: None (occurrence: None)
  Receive Date: 20061226
  Receipt Date: 20061215
  Transmission Date: 20070319
  Serious: Yes (Hospitalization)
  Sender: FDA-Public Use
  Company Number: IT-AVENTIS-200622779GDDC

PATIENT
  Age: 15 Year
  Sex: Male

DRUGS (1)
  1. HYDROCORTISONE [Suspect]
     Indication: ASTHMA
     Dosage: DOSE: 1 G
     Route: 042
     Dates: start: 20061202, end: 20061202

REACTIONS (1)
  - URTICARIA [None]
